FAERS Safety Report 14532014 (Version 1)
Quarter: 2018Q1

REPORT INFORMATION
  Report Type: Spontaneous
  Country: US (occurrence: US)
  Receive Date: 20180214
  Receipt Date: 20180214
  Transmission Date: 20180509
  Serious: Yes (Other)
  Sender: FDA-Public Use
  Company Number: US-THE PROACTIV LLC-2041976

PATIENT
  Age: 16 Year
  Sex: Male

DRUGS (5)
  1. PROACTIV REVITALIZING TONER COMBINATION THERAPY ACNE TREATMENT [Suspect]
     Active Substance: SALICYLIC ACID
  2. PROACTIV PLUS EMERGENCY BLEMISH RELIEF [Suspect]
     Active Substance: BENZOYL PEROXIDE
  3. PROACTIV REPAIRING TREATMENT [Suspect]
     Active Substance: BENZOYL PEROXIDE
  4. PROACTIV DEEP CLEANSING WASH [Suspect]
     Active Substance: SALICYLIC ACID
  5. PROACTIV SOLUTION RENEWING CLEANSER [Suspect]
     Active Substance: BENZOYL PEROXIDE

REACTIONS (2)
  - Syncope [Unknown]
  - Hypersensitivity [Unknown]

NARRATIVE: CASE EVENT DATE: 20180205
